FAERS Safety Report 4990726-3 (Version None)
Quarter: 2006Q2

REPORT INFORMATION
  Report Type: 
  Country: None (occurrence: None)
  Receive Date: 20060428
  Receipt Date: 20060418
  Transmission Date: 20061013
  Serious: Yes (Other)
  Sender: FDA-Public Use
  Company Number: GB200604002929

PATIENT
  Age: 43 Year
  Sex: Female
  Weight: 69.8539 kg

DRUGS (2)
  1. FLUOXETINE HCL [Suspect]
     Indication: ANXIETY
     Dosage: 20 MG ORAL
     Route: 048
     Dates: start: 20060307
  2. ASPIRIN [Concomitant]

REACTIONS (4)
  - GASTRITIS [None]
  - HEADACHE [None]
  - REFLUX OESOPHAGITIS [None]
  - UPPER GASTROINTESTINAL HAEMORRHAGE [None]
